FAERS Safety Report 25352860 (Version 1)
Quarter: 2025Q2

REPORT INFORMATION
  Report Type: Spontaneous
  Country: CN (occurrence: CN)
  Receive Date: 20250523
  Receipt Date: 20250523
  Transmission Date: 20250716
  Serious: Yes (Hospitalization, Disabling)
  Sender: PFIZER
  Company Number: CN-PFIZER INC-PV202500061357

PATIENT
  Age: 94 Year
  Sex: Male
  Weight: 45 kg

DRUGS (2)
  1. ZYVOX [Suspect]
     Active Substance: LINEZOLID
     Indication: Biliary tract infection
     Dosage: 600 MG, 2X/DAY
     Route: 041
     Dates: start: 20250409, end: 20250422
  2. ZYVOX [Suspect]
     Active Substance: LINEZOLID
     Indication: Pneumonia

REACTIONS (4)
  - Upper gastrointestinal haemorrhage [Recovering/Resolving]
  - Platelet count decreased [Recovered/Resolved]
  - Haemoglobin decreased [Recovering/Resolving]
  - Anaemia [Recovering/Resolving]

NARRATIVE: CASE EVENT DATE: 20250418
